FAERS Safety Report 15533473 (Version 1)
Quarter: 2018Q4

REPORT INFORMATION
  Report Type: Spontaneous
  Country: FR (occurrence: FR)
  Receive Date: 20181019
  Receipt Date: 20181019
  Transmission Date: 20190205
  Serious: Yes (Other)
  Sender: FDA-Public Use
  Company Number: FR-PFIZER INC-2018420689

PATIENT
  Age: 71 Year
  Sex: Female

DRUGS (2)
  1. DALACINE [Suspect]
     Active Substance: CLINDAMYCIN
     Indication: ERYSIPELAS
     Dosage: 1800 MG, 1X/DAY
     Route: 048
     Dates: start: 20161018, end: 20161028
  2. TARGOCID [Suspect]
     Active Substance: TEICOPLANIN
     Indication: ERYSIPELAS
     Dosage: 800 MG, 1X/DAY
     Route: 042
     Dates: start: 20161018, end: 20161022

REACTIONS (3)
  - Aspartate aminotransferase increased [Recovered/Resolved]
  - Alanine aminotransferase increased [Recovered/Resolved]
  - Hepatocellular injury [Recovered/Resolved]

NARRATIVE: CASE EVENT DATE: 20161022
